FAERS Safety Report 6148540-1 (Version None)
Quarter: 2009Q2

REPORT INFORMATION
  Report Type: 
  Country: None (occurrence: None)
  Receive Date: 20090408
  Receipt Date: 20090325
  Transmission Date: 20091009
  Serious: Yes (Death)
  Sender: FDA-Public Use
  Company Number: FR-GENENTECH-280106

PATIENT
  Sex: Male

DRUGS (5)
  1. MABTHERA [Suspect]
     Indication: DIFFUSE LARGE B-CELL LYMPHOMA
     Route: 042
  2. METHOTREXATE [Concomitant]
     Indication: PREMEDICATION
  3. DEXCHLORPHENIRAMINE [Concomitant]
     Indication: PREMEDICATION
  4. CORTICOIDS [Concomitant]
     Indication: PREMEDICATION
  5. PARACETAMOL [Concomitant]
     Indication: PREMEDICATION

REACTIONS (2)
  - BONE PAIN [None]
  - MULTI-ORGAN FAILURE [None]
